FAERS Safety Report 8464639-9 (Version None)
Quarter: 2012Q2

REPORT INFORMATION
  Report Type: 
  Country: None (occurrence: None)
  Receive Date: 20120626
  Receipt Date: 20120622
  Transmission Date: 20120825
  Serious: Yes (Life-Threatening, Hospitalization)
  Sender: FDA-Public Use
  Company Number: US-BAYER-2012-062361

PATIENT
  Age: 56 Year
  Sex: Female

DRUGS (1)
  1. BETASERON [Suspect]
     Indication: PRODUCT USED FOR UNKNOWN INDICATION
     Dosage: UNK
     Dates: start: 19980101

REACTIONS (4)
  - INJECTION SITE INFECTION [None]
  - CARDIO-RESPIRATORY ARREST [None]
  - PYREXIA [None]
  - SEPSIS [None]
